FAERS Safety Report 6137882-1 (Version None)
Quarter: 2009Q1

REPORT INFORMATION
  Report Type: 
  Country: None (occurrence: None)
  Receive Date: 20090331
  Receipt Date: 20090327
  Transmission Date: 20090719
  Serious: Yes (Hospitalization)
  Sender: FDA-Public Use
  Company Number: JP-ASTRAZENECA-2009AP02273

PATIENT
  Age: 79 Year
  Sex: Male

DRUGS (2)
  1. ZOLADEX [Suspect]
     Indication: PROSTATE CANCER
     Route: 058
     Dates: start: 20080918, end: 20090326
  2. BEZATOL SR [Suspect]
     Dosage: DOSE UNKNOWN
     Route: 048

REACTIONS (1)
  - INTERSTITIAL LUNG DISEASE [None]
